FAERS Safety Report 24308779 (Version 1)
Quarter: 2024Q3

REPORT INFORMATION
  Report Type: Spontaneous
  Country: US (occurrence: None)
  Receive Date: 20240911
  Receipt Date: 20240911
  Transmission Date: 20241016
  Serious: Yes (Hospitalization, Disabling)
  Sender: Public
  Company Number: None

PATIENT
  Age: 24 Year
  Sex: Female
  Weight: 85.5 kg

DRUGS (3)
  1. ANNOVERA [Suspect]
     Active Substance: ETHINYL ESTRADIOL\SEGESTERONE ACETATE
     Indication: Contraception
  2. ELIQUIS [Concomitant]
     Active Substance: APIXABAN
  3. Women^s Multi-Vitamin [Concomitant]

REACTIONS (2)
  - May-Thurner syndrome [None]
  - Thrombosis [None]

NARRATIVE: CASE EVENT DATE: 20240726
